FAERS Safety Report 25582186 (Version 1)
Quarter: 2025Q3

REPORT INFORMATION
  Report Type: Spontaneous
  Country: US (occurrence: US)
  Receive Date: 20250719
  Receipt Date: 20250719
  Transmission Date: 20251021
  Serious: Yes (Death, Hospitalization)
  Sender: AMGEN
  Company Number: US-AMGEN-USASP2025135961

PATIENT
  Age: 69 Year
  Sex: Male

DRUGS (5)
  1. RITUXIMAB [Suspect]
     Active Substance: RITUXIMAB
     Indication: Chronic lymphocytic leukaemia
     Dosage: UNK UNK, QMO
     Route: 065
  2. VENETOCLAX [Concomitant]
     Active Substance: VENETOCLAX
     Indication: Chronic lymphocytic leukaemia
     Route: 065
  3. Immunoglobulin [Concomitant]
     Indication: Chronic lymphocytic leukaemia
     Route: 040
  4. ACYCLOVIR [Concomitant]
     Active Substance: ACYCLOVIR
     Indication: Prophylaxis
     Route: 048
  5. DOXYCYCLINE [Concomitant]
     Active Substance: DOXYCYCLINE
     Route: 065
     Dates: start: 202309

REACTIONS (9)
  - Viral infection [Fatal]
  - SARS-CoV-2 test positive [Recovered/Resolved]
  - Acute kidney injury [Recovered/Resolved]
  - Respiratory failure [Unknown]
  - Somnolence [Recovered/Resolved]
  - Orthopox virus infection [Recovered/Resolved]
  - Cow pox [Recovered/Resolved]
  - Malnutrition [Recovered/Resolved]
  - Impaired healing [Recovered/Resolved]
